FAERS Safety Report 14552072 (Version 1)
Quarter: 2018Q1

REPORT INFORMATION
  Report Type: Spontaneous
  Country: US (occurrence: US)
  Receive Date: 20180216
  Receipt Date: 20180216
  Transmission Date: 20180509
  Serious: Yes (Hospitalization)
  Sender: FDA-Public Use
  Company Number: None

PATIENT
  Age: 44 Year
  Sex: Male

DRUGS (1)
  1. LETAIRIS [Suspect]
     Active Substance: AMBRISENTAN
     Indication: PULMONARY ARTERIAL HYPERTENSION
     Route: 048
     Dates: start: 20081211

REACTIONS (4)
  - Dyspnoea [None]
  - Pulmonary hypertensive crisis [None]
  - Treatment noncompliance [None]
  - Liver function test increased [None]

NARRATIVE: CASE EVENT DATE: 20180211
